FAERS Safety Report 10202161 (Version 12)
Quarter: 2015Q4

REPORT INFORMATION
  Report Type: Spontaneous
  Country: US (occurrence: US)
  Receive Date: 20140528
  Receipt Date: 20151023
  Transmission Date: 20160304
  Serious: Yes (Hospitalization, Other)
  Sender: FDA-Public Use
  Company Number: US-GLAXOSMITHKLINE-A1074821A

PATIENT
  Age: 10 Year
  Sex: Female

DRUGS (12)
  1. FLOLAN [Suspect]
     Active Substance: EPOPROSTENOL SODIUM
     Indication: PULMONARY HYPERTENSION
     Dosage: UNK
  2. FLOLAN [Suspect]
     Active Substance: EPOPROSTENOL SODIUM
     Dosage: 111 NG/KG/MIN, CONCENTRATION 45000 NG/ML, PUMP RATE 67 ML/DAY, VIAL STRENGTH 1.5 MG
     Route: 042
  3. FLOLAN [Suspect]
     Active Substance: EPOPROSTENOL SODIUM
     Indication: COR PULMONALE CHRONIC
     Dosage: 113 NG/KG/MIN, CONCENTRATION 45000 NG/ML, PUMP RATE 69 ML/DAY, VIAL STRENGTH 1.5 MG
     Route: 042
     Dates: start: 20100803
  4. FLOLAN [Suspect]
     Active Substance: EPOPROSTENOL SODIUM
     Indication: PULMONARY ARTERIAL HYPERTENSION
     Dosage: 111 NG/KG/MIN, CONCENTRATION 45000 NG/ML, PUMP RATE 67 ML/DAY, VIAL STRENGTH 1.5 MG
     Route: 042
  5. LETAIRIS [Concomitant]
     Active Substance: AMBRISENTAN
  6. REVATIO [Concomitant]
     Active Substance: SILDENAFIL CITRATE
  7. WARFARIN [Concomitant]
     Active Substance: WARFARIN
  8. FLOLAN [Suspect]
     Active Substance: EPOPROSTENOL SODIUM
     Dosage: 68 NG/KG/MIN
     Route: 042
  9. FLOLAN [Suspect]
     Active Substance: EPOPROSTENOL SODIUM
     Dosage: 22 NG/KG/MIN, UNK
     Route: 042
  10. FLOLAN [Suspect]
     Active Substance: EPOPROSTENOL SODIUM
     Dosage: UNK, CO
     Dates: start: 20150721
  11. FLOLAN [Suspect]
     Active Substance: EPOPROSTENOL SODIUM
     Dosage: 56 NG/KG/MIN
     Route: 042
  12. COUMADIN [Concomitant]
     Active Substance: WARFARIN SODIUM

REACTIONS (15)
  - Pruritus [Unknown]
  - Device breakage [Unknown]
  - Headache [Unknown]
  - Erythema [Unknown]
  - Catheter site extravasation [Unknown]
  - Medical device change [Unknown]
  - Rash [Unknown]
  - Hospitalisation [Unknown]
  - Pain [Unknown]
  - Catheter removal [Unknown]
  - Catheter placement [Unknown]
  - Pyrexia [Unknown]
  - Medical device complication [Unknown]
  - Diarrhoea [Unknown]
  - Cardiac operation [Unknown]

NARRATIVE: CASE EVENT DATE: 20150820
